FAERS Safety Report 5247100-4 (Version None)
Quarter: 2007Q1

REPORT INFORMATION
  Report Type: 
  Country: None (occurrence: None)
  Receive Date: 20070226
  Receipt Date: 20070220
  Transmission Date: 20070707
  Serious: Yes (Hospitalization)
  Sender: FDA-Public Use
  Company Number: AT-MERCK-0702AUT00007

PATIENT
  Age: 75 Year
  Sex: Female

DRUGS (5)
  1. PRIMAXIN [Suspect]
     Indication: PNEUMONIA
     Route: 051
     Dates: start: 20070201, end: 20070201
  2. PRIMAXIN [Suspect]
     Route: 051
     Dates: start: 20070201, end: 20070201
  3. PRIMAXIN [Suspect]
     Route: 051
     Dates: start: 20070201, end: 20070201
  4. KLACID [Concomitant]
     Route: 065
     Dates: start: 20070201
  5. MAXIPIME [Suspect]
     Indication: PNEUMONIA
     Route: 065
     Dates: start: 20070201, end: 20070201

REACTIONS (2)
  - ACUTE RESPIRATORY FAILURE [None]
  - MUSCLE SPASMS [None]
